FAERS Safety Report 6267454-X (Version None)
Quarter: 2009Q3

REPORT INFORMATION
  Report Type: 
  Country: None (occurrence: None)
  Receive Date: 20090714
  Receipt Date: 20090702
  Transmission Date: 20100115
  Serious: Yes (Death, Other)
  Sender: FDA-Public Use
  Company Number: US-WYE-H10004209

PATIENT
  Age: 64 Year
  Sex: Female

DRUGS (20)
  1. RELISTOR [Suspect]
     Indication: CONSTIPATION
     Dosage: 12 MG EVERY 1 TOT
     Route: 058
     Dates: start: 20080807, end: 20080807
  2. PROTONIX [Concomitant]
     Route: 048
  3. METOPROLOL TARTRATE [Concomitant]
     Route: 065
  4. ZOFRAN [Concomitant]
     Dosage: 4 MG, EVERY 6 HOURS, PRN
     Route: 042
  5. POTASSIUM CHLORIDE [Concomitant]
     Dosage: 40 MEQ EVERY 1 TOT
     Route: 048
  6. LISINOPRIL [Concomitant]
     Route: 065
  7. OXYCODONE HCL [Concomitant]
     Indication: PAIN
     Dosage: 5 MG EVERY 6 HOURS PRN
     Route: 048
  8. MEGACE [Concomitant]
     Route: 048
  9. NEURONTIN [Concomitant]
     Route: 048
  10. POTASSIUM EFFERVESCENT [Concomitant]
     Route: 048
  11. OXYCONTIN [Concomitant]
     Route: 048
  12. SENOKOT [Concomitant]
     Dosage: 50/8.6 MG, 1 TAB, TWICE A DAY
     Route: 048
  13. TOPROL-XL [Concomitant]
     Route: 048
  14. XELODA [Concomitant]
     Route: 048
  15. MAGNESIUM CITRATE [Concomitant]
  16. MILK OF MAGNESIA TAB [Concomitant]
  17. LACTULOSE [Concomitant]
  18. GOLYTELY [Concomitant]
  19. FLEET [Concomitant]
  20. MORPHINE [Concomitant]
     Dosage: 2 MG, PRN
     Route: 042

REACTIONS (3)
  - ABDOMINAL PAIN [None]
  - BLOOD PRESSURE DECREASED [None]
  - INTESTINAL PERFORATION [None]
